FAERS Safety Report 19476371 (Version 2)
Quarter: 2021Q2

REPORT INFORMATION
  Report Type: Spontaneous
  Country: IT (occurrence: IT)
  Receive Date: 20210630
  Receipt Date: 20210630
  Transmission Date: 20210717
  Serious: Yes (Life-Threatening, Hospitalization, Other)
  Sender: FDA-Public Use
  Company Number: IT-PFIZER INC-2021725757

PATIENT
  Age: 75 Year
  Sex: Male

DRUGS (7)
  1. DEXAMETHASONE. [Concomitant]
     Active Substance: DEXAMETHASONE
     Indication: COVID-19
  2. HEPARIN SODIUM. [Suspect]
     Active Substance: HEPARIN SODIUM
     Dosage: UNFRACTIONATED HEPARIN
  3. TOCILIZUMAB. [Concomitant]
     Active Substance: TOCILIZUMAB
     Indication: RESPIRATORY FAILURE
  4. ENOXAPARIN [Concomitant]
     Active Substance: ENOXAPARIN
     Indication: RESPIRATORY FAILURE
     Dosage: 4000 IU, 1X/DAY
  5. TOCILIZUMAB. [Concomitant]
     Active Substance: TOCILIZUMAB
     Indication: COVID-19
     Dosage: TWO CYCLES OF TOCILIZUMAB THERAPY (TWO INTRAVENOUS BOLUS OF 400 MG  OVER 2 DAYS) (ON DAY 2 AND DAY 3
     Route: 040
  6. ENOXAPARIN [Concomitant]
     Active Substance: ENOXAPARIN
     Indication: COVID-19
  7. DEXAMETHASONE. [Concomitant]
     Active Substance: DEXAMETHASONE
     Indication: RESPIRATORY FAILURE
     Dosage: 6 MG, 1X/DAY
     Route: 042

REACTIONS (1)
  - Drug ineffective [Recovered/Resolved]
